FAERS Safety Report 6021720-1 (Version None)
Quarter: 2008Q4

REPORT INFORMATION
  Report Type: 
  Country: None (occurrence: None)
  Receive Date: 20081229
  Receipt Date: 20081219
  Transmission Date: 20090506
  Serious: Yes (Other)
  Sender: FDA-Public Use
  Company Number: GB-AVENTIS-200821808GDDC

PATIENT

DRUGS (2)
  1. FLAGYL [Suspect]
     Dosage: DOSE: UNK
  2. TAZOCIN [Concomitant]

REACTIONS (1)
  - CONVULSION [None]
